FAERS Safety Report 5271204-3 (Version None)
Quarter: 2007Q1

REPORT INFORMATION
  Report Type: 
  Country: None (occurrence: None)
  Receive Date: 20070315
  Receipt Date: 20070301
  Transmission Date: 20070707
  Serious: Yes (Other)
  Sender: FDA-Public Use
  Company Number: 236787

PATIENT
  Age: 70 Year
  Sex: Male

DRUGS (1)
  1. AVASTIN [Suspect]
     Indication: RENAL CANCER METASTATIC
     Dosage: 10 MG/KG, Q2W

REACTIONS (5)
  - HAEMOLYTIC URAEMIC SYNDROME [None]
  - HYPERTENSION [None]
  - NEPHROTIC SYNDROME [None]
  - RENAL FAILURE ACUTE [None]
  - THROMBOTIC MICROANGIOPATHY [None]
